FAERS Safety Report 17920251 (Version 1)
Quarter: 2020Q2

REPORT INFORMATION
  Report Type: Spontaneous
  Country: US (occurrence: US)
  Receive Date: 20200620
  Receipt Date: 20200620
  Transmission Date: 20200714
  Serious: No
  Sender: FDA-Public Use
  Company Number: US-TEVA-2020-US-1789570

PATIENT
  Sex: Female

DRUGS (1)
  1. NUVIGIL [Suspect]
     Active Substance: ARMODAFINIL
     Indication: NARCOLEPSY
     Dosage: 2 TIMES PER DAY IN AM AND IN PM, USING AS LONG AS 10 YEARS AGO
     Route: 065

REACTIONS (9)
  - Hypersomnia [Unknown]
  - Impaired driving ability [Unknown]
  - Fibula fracture [Unknown]
  - Loss of personal independence in daily activities [Unknown]
  - Tibia fracture [Unknown]
  - Wrong technique in product usage process [Unknown]
  - Asthenia [Unknown]
  - Treatment noncompliance [Unknown]
  - Inability to afford medication [Unknown]
